FAERS Safety Report 13980454 (Version 1)
Quarter: 2017Q3

REPORT INFORMATION
  Report Type: Spontaneous
  Country: US (occurrence: US)
  Receive Date: 20170918
  Receipt Date: 20170918
  Transmission Date: 20171128
  Serious: Yes (Hospitalization)
  Sender: FDA-Public Use
  Company Number: US-CELGENEUS-USA-20170903147

PATIENT
  Sex: Male
  Weight: 77.18 kg

DRUGS (1)
  1. REVLIMID [Suspect]
     Active Substance: LENALIDOMIDE
     Indication: LYMPHOMA
     Dosage: 25 MILLIGRAM
     Route: 048
     Dates: start: 20170817

REACTIONS (4)
  - Constipation [Unknown]
  - Fatigue [Unknown]
  - Blood potassium decreased [Unknown]
  - Decreased appetite [Unknown]
